FAERS Safety Report 21752284 (Version 1)
Quarter: 2022Q4

REPORT INFORMATION
  Report Type: Report from Study
  Country: US (occurrence: US)
  Receive Date: 20221220
  Receipt Date: 20221220
  Transmission Date: 20230113
  Serious: No
  Sender: FDA-Public Use
  Company Number: US-ABBVIE-4198908

PATIENT
  Sex: Female

DRUGS (2)
  1. SKYRIZI [Suspect]
     Active Substance: RISANKIZUMAB-RZAA
     Indication: Psoriasis
     Dosage: WEEK 0 DRUG START DATE AND END DATE WAS SEP 2022
     Route: 058
  2. SKYRIZI [Suspect]
     Active Substance: RISANKIZUMAB-RZAA
     Dosage: WEEK 4, DRUG START DATE 2022
     Route: 058

REACTIONS (4)
  - Fatigue [Unknown]
  - Erythema [Unknown]
  - Pain [Unknown]
  - Sluggishness [Unknown]

NARRATIVE: CASE EVENT DATE: 20220101
